FAERS Safety Report 15960380 (Version 2)
Quarter: 2020Q2

REPORT INFORMATION
  Report Type: Spontaneous
  Country: US (occurrence: US)
  Receive Date: 20190214
  Receipt Date: 20200402
  Transmission Date: 20200713
  Serious: No
  Sender: FDA-Public Use
  Company Number: US-ROCHE-2228188

PATIENT
  Sex: Female
  Weight: 50.85 kg

DRUGS (2)
  1. ERIVEDGE [Suspect]
     Active Substance: VISMODEGIB
     Indication: BASAL CELL CARCINOMA
     Dosage: EVERY OTHER DAY
     Route: 065
     Dates: start: 201810
  2. ERIVEDGE [Suspect]
     Active Substance: VISMODEGIB
     Dosage: EVERY DAY ;ONGOING: YES
     Route: 065
     Dates: start: 2018

REACTIONS (5)
  - Fatigue [Not Recovered/Not Resolved]
  - Alopecia [Recovering/Resolving]
  - Arthritis [Not Recovered/Not Resolved]
  - Somnolence [Not Recovered/Not Resolved]
  - Bone contusion [Unknown]
